FAERS Safety Report 24727453 (Version 1)
Quarter: 2024Q4

REPORT INFORMATION
  Report Type: Spontaneous
  Country: GB (occurrence: GB)
  Receive Date: 20241212
  Receipt Date: 20241212
  Transmission Date: 20250115
  Serious: Yes (Hospitalization, Other)
  Sender: ELI LILLY AND COMPANY
  Company Number: None

PATIENT
  Sex: Female

DRUGS (1)
  1. MOUNJARO [Suspect]
     Active Substance: TIRZEPATIDE
     Indication: Product used for unknown indication
     Dosage: 7.5 MG, UNKNOWN
     Route: 065
     Dates: end: 20241206

REACTIONS (4)
  - Gastritis [Not Recovered/Not Resolved]
  - Vomiting [Unknown]
  - Feeding disorder [Unknown]
  - Blood ketone body decreased [Unknown]

NARRATIVE: CASE EVENT DATE: 20241206
